FAERS Safety Report 10159763 (Version 2)
Quarter: 2015Q1

REPORT INFORMATION
  Report Type: Spontaneous
  Country: US (occurrence: US)
  Receive Date: 20140508
  Receipt Date: 20150210
  Transmission Date: 20150720
  Serious: No
  Sender: FDA-Public Use
  Company Number: US-GLAXOSMITHKLINE-A1025993A

PATIENT

DRUGS (1)
  1. TYKERB [Suspect]
     Active Substance: LAPATINIB DITOSYLATE
     Indication: BREAST CANCER
     Dosage: 250MG AT UNKNOWN DOSING
     Route: 065
     Dates: start: 20130420

REACTIONS (4)
  - Dyspnoea [Unknown]
  - Nasal inflammation [Unknown]
  - Diarrhoea [Recovered/Resolved]
  - Parophthalmia [Unknown]

NARRATIVE: CASE EVENT DATE: 201305
